FAERS Safety Report 4609523-3 (Version None)
Quarter: 2005Q1

REPORT INFORMATION
  Report Type: 
  Country: None (occurrence: None)
  Receive Date: 20050316
  Receipt Date: 20050304
  Transmission Date: 20050727
  Serious: Yes (Hospitalization)
  Sender: FDA-Public Use
  Company Number: PT-JNJFOC-20050301809

PATIENT
  Age: 52 Year
  Sex: Female

DRUGS (2)
  1. REMICADE [Suspect]
     Route: 042
  2. ISONIAZID [Concomitant]
     Indication: TUBERCULOSIS PROPHYLAXIS

REACTIONS (1)
  - TUBERCULOSIS [None]
